FAERS Safety Report 5131228-3 (Version None)
Quarter: 2006Q4

REPORT INFORMATION
  Report Type: 
  Country: None (occurrence: None)
  Receive Date: 20061020
  Receipt Date: 20061009
  Transmission Date: 20070319
  Serious: Yes (Other)
  Sender: FDA-Public Use
  Company Number: PHEH2006US12675

PATIENT
  Age: 48 Year
  Sex: Male

DRUGS (6)
  1. DIOVAN HCT [Suspect]
     Indication: HYPERTENSION
     Dosage: 160 MG VAL/12.5 MG  HCT, QD
     Route: 048
     Dates: start: 20050101, end: 20060901
  2. DIOVAN HCT [Suspect]
     Dosage: 160 MG VAL/12.5 MG HCT, QD
     Route: 048
     Dates: start: 20060901
  3. LOTREL [Suspect]
     Indication: HYPERTENSION
     Dosage: 10 MG / 40 MG, QD
     Route: 048
     Dates: start: 20050101, end: 20060901
  4. LOTREL [Suspect]
     Dosage: 10 MG / 40 MG, QD
     Route: 048
     Dates: start: 20060901
  5. ATENOLOL [Suspect]
     Indication: HYPERTENSION
     Dosage: 100 MG, BID
     Route: 048
     Dates: start: 20050101, end: 20060901
  6. ATENOLOL [Suspect]
     Dosage: 100 MG, BID
     Route: 048
     Dates: start: 20060901

REACTIONS (5)
  - BLINDNESS [None]
  - BLINDNESS UNILATERAL [None]
  - EYE DISORDER [None]
  - THROMBOSIS [None]
  - VISUAL ACUITY REDUCED [None]
